FAERS Safety Report 7487693-X (Version None)
Quarter: 2011Q2

REPORT INFORMATION
  Report Type: 
  Country: None (occurrence: None)
  Receive Date: 20110511
  Receipt Date: 20110426
  Transmission Date: 20111010
  Serious: Yes (Hospitalization)
  Sender: FDA-Public Use
  Company Number: AUR-APL-2011-01592

PATIENT
  Age: 67 Year
  Sex: Male

DRUGS (26)
  1. TRAMADOL HCL [Suspect]
  2. SIMVASTATIN [Suspect]
     Indication: DYSLIPIDAEMIA
     Dosage: 40MG-DAILY-ORAL
     Route: 048
     Dates: end: 20110125
  3. TRINIPATCH [Suspect]
  4. VENTOLIN [Suspect]
  5. PANTOPRAZOLE [Suspect]
  6. CAFFEINE/PAPAVER SOMNIFERUM LATEX/PARACETAMOL (LAMALINE) [Concomitant]
  7. DIACEREIN [Concomitant]
  8. CALCIUM CARBONATE/COLECALCIFEROL [Concomitant]
  9. PLAVIX [Concomitant]
  10. NITROGLYCERIN [Concomitant]
  11. PANTOPRAZOLE [Concomitant]
  12. PLAVIX [Suspect]
  13. VOLTAREN [Suspect]
  14. VENTOLIN HFA [Concomitant]
  15. CLONAZEPAM [Concomitant]
  16. OXAZEPAM [Concomitant]
  17. DICLOFENAC SODIUM (VOLATERENE GEL) [Concomitant]
  18. STRUCTUM [Suspect]
  19. CHONDROITIN SULFATE SODIUM (STRUCTUM) [Concomitant]
  20. DIACCEREIN [Suspect]
  21. TRAMADOL HCL [Concomitant]
  22. DIHYDROCODEINE BITARTRATE [Concomitant]
  23. SERTRALINE HYDROCHLORIDE [Concomitant]
  24. CORDARONE [Suspect]
     Indication: ARRHYTHMIA
     Dosage: 200MG-ORAL
     Route: 048
     Dates: end: 20110125
  25. CALCIUM CARBONATE [Suspect]
  26. ZOLPIDEM TARTRATE [Concomitant]

REACTIONS (7)
  - CONFUSIONAL STATE [None]
  - HALLUCINATION [None]
  - DISORIENTATION [None]
  - CONSCIOUSNESS FLUCTUATING [None]
  - WITHDRAWAL SYNDROME [None]
  - CYTOLYTIC HEPATITIS [None]
  - SPEECH DISORDER [None]
